FAERS Safety Report 7565186-9 (Version None)
Quarter: 2011Q2

REPORT INFORMATION
  Report Type: 
  Country: None (occurrence: None)
  Receive Date: 20110622
  Receipt Date: 20080422
  Transmission Date: 20111010
  Serious: Yes (Disabling, Other)
  Sender: FDA-Public Use
  Company Number: CA-GENENTECH-320441

PATIENT
  Sex: Female

DRUGS (4)
  1. ALVESCO [Concomitant]
     Indication: PRODUCT USED FOR UNKNOWN INDICATION
  2. VENTOLIN HFA [Concomitant]
     Indication: PRODUCT USED FOR UNKNOWN INDICATION
  3. XOLAIR [Suspect]
     Indication: ASTHMA
     Dosage: 150 MG, 1/MONTH
     Route: 058
     Dates: start: 20060824, end: 20080403
  4. ADVAIR DISKUS 100/50 [Concomitant]
     Indication: PRODUCT USED FOR UNKNOWN INDICATION

REACTIONS (6)
  - COMPUTERISED TOMOGRAM ABNORMAL [None]
  - PULMONARY FIBROSIS [None]
  - DYSPNOEA [None]
  - DRUG INEFFECTIVE [None]
  - MALAISE [None]
  - WEIGHT DECREASED [None]
